FAERS Safety Report 18885134 (Version 1)
Quarter: 2021Q1

REPORT INFORMATION
  Report Type: Spontaneous
  Country: US (occurrence: US)
  Receive Date: 20210211
  Receipt Date: 20210211
  Transmission Date: 20210420
  Serious: No
  Sender: FDA-Public Use
  Company Number: None

PATIENT
  Age: 56 Year
  Sex: Male
  Weight: 99 kg

DRUGS (1)
  1. MANUKA HONEY ALLERCLEANSE [Suspect]
     Active Substance: HERBALS\HONEY
     Indication: SINUS DISORDER
     Dosage: ?          QUANTITY:2 SPRAY(S);?
     Route: 055
     Dates: start: 20201120, end: 20210211

REACTIONS (1)
  - Sinus disorder [None]

NARRATIVE: CASE EVENT DATE: 20201120
